FAERS Safety Report 17795653 (Version 2)
Quarter: 2020Q2

REPORT INFORMATION
  Report Type: Spontaneous
  Country: US (occurrence: US)
  Receive Date: 20200516
  Receipt Date: 20200521
  Transmission Date: 20200714
  Serious: No
  Sender: FDA-Public Use
  Company Number: US-CELGENEUS-USA-20200504122

PATIENT
  Age: 62 Year
  Sex: Female

DRUGS (3)
  1. OTEZLA [Suspect]
     Active Substance: APREMILAST
     Indication: PSORIATIC ARTHROPATHY
     Dosage: 60 MILLIGRAM
     Route: 048
     Dates: start: 20200324
  2. OTEZLA [Suspect]
     Active Substance: APREMILAST
     Dosage: 10,20,30 MILLIGRAMS
     Route: 048
     Dates: start: 2020, end: 202005
  3. METHOTREXATE. [Concomitant]
     Active Substance: METHOTREXATE
     Indication: PRODUCT USED FOR UNKNOWN INDICATION
     Route: 065

REACTIONS (4)
  - Pain [Unknown]
  - Arthralgia [Unknown]
  - Back pain [Unknown]
  - Treatment failure [Unknown]

NARRATIVE: CASE EVENT DATE: 20200428
